FAERS Safety Report 7292504-1 (Version None)
Quarter: 2011Q1

REPORT INFORMATION
  Report Type: 
  Country: None (occurrence: None)
  Receive Date: 20110215
  Receipt Date: 20110208
  Transmission Date: 20110831
  Serious: Yes (Other)
  Sender: FDA-Public Use
  Company Number: GB-PFIZER INC-2011028792

PATIENT
  Age: 44 Year
  Sex: Female

DRUGS (7)
  1. CLINDAMYCIN PHOSPHATE [Suspect]
     Indication: CELLULITIS
     Dosage: 30 MG, 1X/DAY
     Route: 048
     Dates: start: 20101103, end: 20101108
  2. AMITRIPTYLINE [Concomitant]
     Dosage: 10 MG, 1X/DAY
     Route: 048
     Dates: start: 20101103, end: 20101104
  3. GABAPENTIN [Concomitant]
     Dosage: 300 MG, 1X/DAY
     Route: 048
     Dates: start: 20101105
  4. ESOMEPRAZOLE [Concomitant]
     Dosage: 40 MG, 1X/DAY
     Route: 048
  5. CO-AMILOFRUSE [Concomitant]
     Dosage: 2 DF, 1X/DAY
     Route: 048
  6. FOLIC ACID [Concomitant]
     Dosage: 5 MG, 1X/DAY
     Route: 048
  7. MEBEVERINE [Concomitant]
     Dosage: 135 MG, 3X/DAY
     Route: 048

REACTIONS (1)
  - PARAESTHESIA [None]
